FAERS Safety Report 7711904-6 (Version None)
Quarter: 2011Q3

REPORT INFORMATION
  Report Type: 
  Country: None (occurrence: None)
  Receive Date: 20110826
  Receipt Date: 20110815
  Transmission Date: 20111222
  Serious: Yes (Hospitalization)
  Sender: FDA-Public Use
  Company Number: JP-BRISTOL-MYERS SQUIBB COMPANY-15985542

PATIENT
  Age: 73 Year
  Sex: Male

DRUGS (8)
  1. VESICARE [Concomitant]
     Dosage: VESICARE TABLET
     Dates: start: 20090803
  2. SAXAGLIPTIN [Suspect]
     Indication: TYPE 2 DIABETES MELLITUS
     Dosage: SAXAGLIPTIN TABLET PATIENT WAS WITHDRAWN FROM THE STUDY ON 22APR2011
     Route: 048
     Dates: start: 20101112, end: 20110421
  3. GLUFAST [Concomitant]
     Dosage: GLUFAST TABLET
     Dates: start: 20080530
  4. SENNOSIDE [Concomitant]
     Dosage: SENNOSIDE TABLET
     Dates: start: 20101210
  5. KARY UNI [Concomitant]
     Dosage: KARY UNI EYE DROPS
  6. PETROLATUM [Concomitant]
     Dates: start: 20101020, end: 20110106
  7. FLIVAS [Concomitant]
     Dosage: FLIVAS TABLET
     Dates: start: 20100927
  8. PURSENNID [Concomitant]
     Dosage: PURSENNID TABLET
     Dates: start: 20100818, end: 20101209

REACTIONS (5)
  - ALANINE AMINOTRANSFERASE INCREASED [None]
  - HEPATIC FUNCTION ABNORMAL [None]
  - ASPARTATE AMINOTRANSFERASE INCREASED [None]
  - GAMMA-GLUTAMYLTRANSFERASE INCREASED [None]
  - BLOOD ALKALINE PHOSPHATASE INCREASED [None]
